FAERS Safety Report 8042617-1 (Version None)
Quarter: 2012Q1

REPORT INFORMATION
  Report Type: 
  Country: None (occurrence: None)
  Receive Date: 20120112
  Receipt Date: 20120110
  Transmission Date: 20120608
  Serious: Yes (Hospitalization, Other)
  Sender: FDA-Public Use
  Company Number: US-PFIZER INC-2012004878

PATIENT
  Sex: Female
  Weight: 66.213 kg

DRUGS (4)
  1. CHANTIX [Suspect]
     Indication: SMOKING CESSATION THERAPY
     Dosage: 0.5 MG, 1X/DAY
     Route: 048
     Dates: start: 20110701, end: 20110701
  2. PERCOCET [Concomitant]
     Indication: PAIN
     Dosage: UNK
  3. AMITRIPTYLINE [Concomitant]
     Indication: SLEEP DISORDER
     Dosage: 10 MG, UNK
  4. CHANTIX [Suspect]
     Dosage: UNK
     Route: 048
     Dates: start: 20110701, end: 20110801

REACTIONS (4)
  - DEPRESSION [None]
  - ABNORMAL DREAMS [None]
  - AGITATION [None]
  - CONVULSION [None]
